FAERS Safety Report 12798372 (Version 1)
Quarter: 2016Q3

REPORT INFORMATION
  Report Type: Spontaneous
  Country: US (occurrence: US)
  Receive Date: 20160930
  Receipt Date: 20160930
  Transmission Date: 20161109
  Serious: No
  Sender: FDA-Public Use
  Company Number: US-KOWA-15US001356

PATIENT
  Age: 68 Year
  Sex: Male

DRUGS (7)
  1. KEPPRA [Concomitant]
     Active Substance: LEVETIRACETAM
     Dosage: 500 MG, UNK
  2. DILANTIN [Concomitant]
     Active Substance: PHENYTOIN
     Dosage: 300 MG, UNK
  3. LIVALO [Suspect]
     Active Substance: PITAVASTATIN CALCIUM
     Dosage: 2 MG, UNK
     Route: 048
     Dates: start: 20150701, end: 201507
  4. VALIUM [Concomitant]
     Active Substance: DIAZEPAM
     Dosage: 5 MG, TID
  5. ASPIRIN                            /00002701/ [Concomitant]
     Active Substance: ASPIRIN
     Dosage: 81 MG, QD
  6. DILANTIN [Concomitant]
     Active Substance: PHENYTOIN
     Dosage: 400 MG, QD
     Dates: start: 1970
  7. VIMPAT [Concomitant]
     Active Substance: LACOSAMIDE
     Dosage: 200 MG, QD

REACTIONS (2)
  - Blood glucose increased [Recovered/Resolved]
  - Stress [Not Recovered/Not Resolved]

NARRATIVE: CASE EVENT DATE: 20150701
